FAERS Safety Report 6218237-8 (Version None)
Quarter: 2009Q2

REPORT INFORMATION
  Report Type: 
  Country: None (occurrence: None)
  Receive Date: 20090608
  Receipt Date: 20090603
  Transmission Date: 20091009
  Serious: Yes (Death, Life-Threatening, Hospitalization)
  Sender: FDA-Public Use
  Company Number: US-BRISTOL-MYERS SQUIBB COMPANY-14649495

PATIENT
  Age: 35 Year

DRUGS (1)
  1. COUMADIN [Suspect]
     Indication: HYPERCOAGULATION
     Dates: start: 20090301, end: 20090301

REACTIONS (4)
  - COMA [None]
  - HAEMORRHAGE INTRACRANIAL [None]
  - INTERNATIONAL NORMALISED RATIO FLUCTUATION [None]
  - PERITONITIS [None]
